FAERS Safety Report 5521405-1 (Version None)
Quarter: 2007Q4

REPORT INFORMATION
  Report Type: 
  Country: None (occurrence: None)
  Receive Date: 20071119
  Receipt Date: 20071109
  Transmission Date: 20080405
  Serious: Yes (Hospitalization, Disabling, Other)
  Sender: FDA-Public Use
  Company Number: US-MERCK-0705USA03549

PATIENT
  Age: 60 Year
  Sex: Female

DRUGS (19)
  1. FOSAMAX [Suspect]
     Route: 048
     Dates: start: 20010920, end: 20031115
  2. FOSAMAX [Suspect]
     Route: 048
     Dates: start: 20000101
  3. ACTONEL [Suspect]
     Route: 065
     Dates: start: 20031223, end: 20050407
  4. LASIX [Concomitant]
     Indication: BLOOD PRESSURE
     Route: 065
     Dates: start: 20040101
  5. LASIX [Concomitant]
     Indication: RENAL DISORDER
     Route: 065
     Dates: start: 20040101
  6. LIPITOR [Concomitant]
     Indication: BLOOD CHOLESTEROL
     Route: 065
     Dates: start: 20030101
  7. LIPITOR [Concomitant]
     Route: 065
     Dates: start: 20040101
  8. LIBRAX [Concomitant]
     Route: 065
  9. TIGAN [Concomitant]
     Indication: NAUSEA
     Route: 065
  10. PLENDIL [Concomitant]
     Route: 048
  11. VITAMINS (UNSPECIFIED) [Concomitant]
     Route: 065
  12. POTASSIUM (UNSPECIFIED) [Concomitant]
     Route: 065
  13. VITAMIN B COMPLEX [Concomitant]
     Route: 065
  14. CALCIUM (UNSPECIFIED) [Concomitant]
     Route: 065
  15. ADVIL LIQUI-GELS [Concomitant]
     Route: 065
  16. ATENOLOL [Concomitant]
     Route: 065
  17. ZOCOR [Concomitant]
     Route: 048
  18. XANAX [Concomitant]
     Route: 065
  19. [THERAPY UNSPECIFIED] [Concomitant]
     Route: 065

REACTIONS (28)
  - ANAEMIA POSTOPERATIVE [None]
  - ANXIETY [None]
  - ARTHRALGIA [None]
  - BRACHIAL PLEXOPATHY [None]
  - CARPAL TUNNEL SYNDROME [None]
  - DEPRESSION [None]
  - DRUG HYPERSENSITIVITY [None]
  - DYSPHAGIA [None]
  - FALL [None]
  - FEAR [None]
  - HIATUS HERNIA [None]
  - INFECTION [None]
  - INTERVERTEBRAL DISC DEGENERATION [None]
  - LIMB INJURY [None]
  - NEPHROSCLEROSIS [None]
  - OSTEOARTHRITIS [None]
  - OSTEONECROSIS [None]
  - PHLEBOLITH [None]
  - PLEURITIC PAIN [None]
  - PYREXIA [None]
  - RENAL ARTERY STENOSIS [None]
  - RENAL CYST [None]
  - SINUSITIS [None]
  - SPONDYLOLISTHESIS [None]
  - TOOTH ABSCESS [None]
  - VASCULAR PSEUDOANEURYSM [None]
  - VOMITING [None]
  - WEIGHT INCREASED [None]
